FAERS Safety Report 5745317-3 (Version None)
Quarter: 2008Q2

REPORT INFORMATION
  Report Type: 
  Country: None (occurrence: None)
  Receive Date: 20080521
  Receipt Date: 20080509
  Transmission Date: 20081010
  Serious: Yes (Other)
  Sender: FDA-Public Use
  Company Number: CH-ROCHE-563922

PATIENT
  Sex: Male
  Weight: 1.8 kg

DRUGS (1)
  1. ROACCUTANE GEL [Suspect]
     Indication: ACNE
     Dates: start: 20070201, end: 20070223

REACTIONS (4)
  - CAESAREAN SECTION [None]
  - DRUG EXPOSURE DURING PREGNANCY [None]
  - FOETAL GROWTH RETARDATION [None]
  - PREMATURE BABY [None]
